FAERS Safety Report 6479950-0 (Version None)
Quarter: 2009Q4

REPORT INFORMATION
  Report Type: 
  Country: None (occurrence: None)
  Receive Date: 20091208
  Receipt Date: 20091119
  Transmission Date: 20100525
  Serious: Yes (Hospitalization)
  Sender: FDA-Public Use
  Company Number: JP-SANOFI-AVENTIS-2009SA003149

PATIENT
  Sex: Male

DRUGS (6)
  1. ELPLAT [Suspect]
     Indication: GASTRIC CANCER
     Route: 041
     Dates: start: 20071101, end: 20071101
  2. ELPLAT [Suspect]
     Route: 041
     Dates: start: 20080201, end: 20080201
  3. CALCIUM LEVOFOLINATE [Suspect]
     Indication: GASTRIC CANCER
     Route: 042
     Dates: start: 20071101, end: 20071101
  4. CALCIUM LEVOFOLINATE [Suspect]
     Route: 042
     Dates: start: 20080201, end: 20080201
  5. FLUOROURACIL [Concomitant]
     Indication: GASTRIC CANCER
     Route: 042
     Dates: start: 20071101, end: 20071101
  6. FLUOROURACIL [Concomitant]
     Route: 041
     Dates: start: 20080201, end: 20080201

REACTIONS (1)
  - CEREBRAL HAEMORRHAGE [None]
